FAERS Safety Report 5163551-0 (Version None)
Quarter: 2006Q4

REPORT INFORMATION
  Report Type: 
  Country: None (occurrence: None)
  Receive Date: 20061124
  Receipt Date: 20061114
  Transmission Date: 20070319
  Serious: Yes (Hospitalization, Other)
  Sender: FDA-Public Use
  Company Number: 2006141299

PATIENT
  Age: 58 Year
  Sex: Female
  Weight: 112.4921 kg

DRUGS (2)
  1. SUTENT [Suspect]
     Indication: GASTROINTESTINAL STROMAL TUMOUR
     Dosage: 50 MG (50 MG, QD, EVERYDAY)
     Dates: start: 20061028
  2. PROTONIX [Concomitant]

REACTIONS (11)
  - DIARRHOEA [None]
  - DYSGEUSIA [None]
  - HEADACHE [None]
  - HYPERACUSIS [None]
  - HYPOTRICHOSIS [None]
  - INFECTION [None]
  - NAUSEA [None]
  - PHOTOPHOBIA [None]
  - PNEUMONIA [None]
  - STOMATITIS [None]
  - VOMITING [None]
